FAERS Safety Report 9767993 (Version 1)
Quarter: 2013Q4

REPORT INFORMATION
  Report Type: Spontaneous
  Country: US (occurrence: None)
  Receive Date: 20131217
  Receipt Date: 20131217
  Transmission Date: 20140711
  Serious: Yes (Hospitalization)
  Sender: FDA-Public Use
  Company Number: 2013BAX008904

PATIENT
  Age: 60 Year
  Sex: Female
  Weight: 68 kg

DRUGS (1)
  1. GAMMAGARD LIQUID [Suspect]
     Indication: BLOOD IMMUNOGLOBULIN A DECREASED
     Dosage: 0.3333 GM (20 GM, 1 IN 2 M), INTRAVENOUS ?INTRAVENOUS?

REACTIONS (3)
  - Chills [None]
  - Pyrexia [None]
  - Chills [None]
